FAERS Safety Report 9398313 (Version 1)
Quarter: 2013Q3

REPORT INFORMATION
  Report Type: Report from Study
  Country: DE (occurrence: DE)
  Receive Date: 20130712
  Receipt Date: 20130712
  Transmission Date: 20140515
  Serious: Yes (Hospitalization)
  Sender: FDA-Public Use
  Company Number: DE-TEVA-323684USA

PATIENT
  Age: 69 Year
  Sex: Male

DRUGS (7)
  1. BENDAMUSTINE [Suspect]
     Indication: CHRONIC LYMPHOCYTIC LEUKAEMIA
     Dosage: UID/QD
     Route: 042
     Dates: start: 20120123, end: 20120124
  2. PREGABALIN [Concomitant]
  3. SIMVASTATIN [Concomitant]
  4. ACETYLSALICYLIC ACID [Concomitant]
  5. METOPROLOL [Concomitant]
  6. COTRIM [Concomitant]
  7. ALLOPURINOL [Concomitant]

REACTIONS (3)
  - Pancytopenia [Recovered/Resolved]
  - Headache [Recovered/Resolved]
  - Leukopenia [Not Recovered/Not Resolved]
